FAERS Safety Report 16384924 (Version 4)
Quarter: 2022Q3

REPORT INFORMATION
  Report Type: Spontaneous
  Country: US (occurrence: None)
  Receive Date: 20190603
  Receipt Date: 20220921
  Transmission Date: 20221027
  Serious: Yes (Hospitalization, Other)
  Sender: FDA-Public Use
  Company Number: 2019SE80236

PATIENT
  Age: 712 Month
  Sex: Female
  Weight: 83.9 kg

DRUGS (70)
  1. NEXIUM [Suspect]
     Active Substance: ESOMEPRAZOLE MAGNESIUM
     Indication: Gastrooesophageal reflux disease
     Route: 048
     Dates: start: 2005, end: 2016
  2. NEXIUM [Suspect]
     Active Substance: ESOMEPRAZOLE MAGNESIUM
     Indication: Gastrooesophageal reflux disease
     Route: 048
     Dates: start: 200707, end: 201410
  3. NEXIUM [Suspect]
     Active Substance: ESOMEPRAZOLE MAGNESIUM
     Indication: Gastrooesophageal reflux disease
     Dosage: 40.0MG UNKNOWN
     Route: 048
     Dates: start: 20131028
  4. NEXIUM [Suspect]
     Active Substance: ESOMEPRAZOLE MAGNESIUM
     Indication: Gastrooesophageal reflux disease
     Dosage: 40.0MG UNKNOWN
     Route: 048
     Dates: start: 20121210
  5. NEXIUM [Suspect]
     Active Substance: ESOMEPRAZOLE MAGNESIUM
     Indication: Gastrooesophageal reflux disease
     Dosage: GENERIC UNKNOWN
     Route: 065
  6. NEXIUM 24HR [Suspect]
     Active Substance: ESOMEPRAZOLE MAGNESIUM
     Route: 048
     Dates: start: 2005, end: 2016
  7. NEXIUM 24HR [Suspect]
     Active Substance: ESOMEPRAZOLE MAGNESIUM
     Route: 048
     Dates: start: 2013, end: 2016
  8. PREVACID [Suspect]
     Active Substance: LANSOPRAZOLE
     Indication: Gastrooesophageal reflux disease
     Route: 065
     Dates: start: 2005, end: 2016
  9. PREVACID [Suspect]
     Active Substance: LANSOPRAZOLE
     Indication: Gastrooesophageal reflux disease
     Route: 065
     Dates: start: 200508, end: 200509
  10. PREVACID [Suspect]
     Active Substance: LANSOPRAZOLE
     Indication: Gastrooesophageal reflux disease
     Route: 065
     Dates: start: 200512, end: 200601
  11. PREVACID [Suspect]
     Active Substance: LANSOPRAZOLE
     Indication: Gastrooesophageal reflux disease
     Route: 065
     Dates: start: 200611, end: 200707
  12. CYCLOBENZAPRINE [Concomitant]
     Active Substance: CYCLOBENZAPRINE
     Indication: Muscle relaxant therapy
  13. POTASSIUM CHLORIDE [Concomitant]
     Active Substance: POTASSIUM CHLORIDE
     Indication: Nutritional supplementation
     Dates: start: 200505, end: 201611
  14. DULOXETINE [Concomitant]
     Active Substance: DULOXETINE
     Indication: Mood altered
  15. FLUCONAZOLE [Concomitant]
     Active Substance: FLUCONAZOLE
     Indication: Antifungal treatment
  16. ALPRAZOLAM [Concomitant]
     Active Substance: ALPRAZOLAM
     Indication: Anxiety
  17. VITAMIN D2 [Concomitant]
     Active Substance: ERGOCALCIFEROL
     Indication: Nutritional supplementation
  18. COUMADIN [Concomitant]
     Active Substance: WARFARIN SODIUM
     Indication: Anticoagulant therapy
  19. SPIRONOLACTONE [Concomitant]
     Active Substance: SPIRONOLACTONE
     Indication: Diuretic therapy
  20. MAGNESIUM [Concomitant]
     Active Substance: MAGNESIUM
     Indication: Blood electrolytes
  21. PAXIL [Concomitant]
     Active Substance: PAROXETINE HYDROCHLORIDE
  22. VITAMIN C [Concomitant]
     Active Substance: ASCORBIC ACID
  23. NEPHROCAPS [Concomitant]
     Active Substance: ASCORBIC ACID\BIOTIN\CYANOCOBALAMIN\FOLIC ACID\NIACIN\PANTOTHENIC ACID\PYRIDOXINE\RIBOFLAVIN\THIAMIN
  24. SODIUM BICARBONATE [Concomitant]
     Active Substance: SODIUM BICARBONATE
  25. CALCITRIOL [Concomitant]
     Active Substance: CALCITRIOL
     Dates: start: 20170224
  26. GABAPENTIN [Concomitant]
     Active Substance: GABAPENTIN
     Dates: start: 20161215
  27. HYDROCODONE BITARTRATE AND ACETAMINOPHEN [Concomitant]
     Active Substance: ACETAMINOPHEN\HYDROCODONE BITARTRATE
     Dates: start: 20160919
  28. CLINDAMYCIN [Concomitant]
     Active Substance: CLINDAMYCIN
     Dates: start: 20160919
  29. CALCIUM CARBONATE [Concomitant]
     Active Substance: CALCIUM CARBONATE
     Dates: start: 20160919
  30. FLONASE [Concomitant]
     Active Substance: FLUTICASONE PROPIONATE
     Dates: start: 20160919
  31. LEVOTHYROXINE SODIUM [Concomitant]
     Active Substance: LEVOTHYROXINE SODIUM
     Dates: start: 20160919
  32. ACETAMINOPHEN [Concomitant]
     Active Substance: ACETAMINOPHEN
     Dates: start: 20160919
  33. VENTOLIN [Concomitant]
     Active Substance: ALBUTEROL SULFATE
     Dates: start: 20160919
  34. ALLOPURINOL [Concomitant]
     Active Substance: ALLOPURINOL
     Dates: start: 20160919
  35. LISINOPRIL [Concomitant]
     Active Substance: LISINOPRIL
     Dates: start: 20160919
  36. FLUOCINONIDE [Concomitant]
     Active Substance: FLUOCINONIDE
     Dates: start: 20160919
  37. AMOXICILLIN [Concomitant]
     Active Substance: AMOXICILLIN
     Dates: start: 20160919
  38. FLAGYL [Concomitant]
     Active Substance: METRONIDAZOLE\METRONIDAZOLE HYDROCHLORIDE
  39. DARVOCET [Concomitant]
     Active Substance: ACETAMINOPHEN\PROPOXYPHENE HYDROCHLORIDE
  40. UNSPECIFIED INGREDIENT [Concomitant]
     Active Substance: UNSPECIFIED INGREDIENT
     Dates: start: 20160919
  41. ZOFRAN [Concomitant]
     Active Substance: ONDANSETRON HYDROCHLORIDE
     Dates: start: 20160919
  42. BUPROPION [Concomitant]
     Active Substance: BUPROPION
  43. LYRICA [Concomitant]
     Active Substance: PREGABALIN
  44. RANVELA [Concomitant]
  45. FENTANYL [Concomitant]
     Active Substance: FENTANYL
  46. DILAUDID [Concomitant]
     Active Substance: HYDROMORPHONE HYDROCHLORIDE
  47. TETRACYCLINE [Concomitant]
     Active Substance: TETRACYCLINE
  48. PHOSLO [Concomitant]
     Active Substance: CALCIUM ACETATE
  49. PHENOL [Concomitant]
     Active Substance: PHENOL
  50. VITAMIN B COMPLEX [Concomitant]
     Active Substance: CYANOCOBALAMIN\DEXPANTHENOL\NIACINAMIDE\PYRIDOXINE HYDROCHLORIDE\RIBOFLAVIN 5^-PHOSPHATE SODIUM\THIA
  51. MIDODRINE [Concomitant]
     Active Substance: MIDODRINE
  52. XIFAXAN [Concomitant]
     Active Substance: RIFAXIMIN
  53. LACTULOSE [Concomitant]
     Active Substance: LACTULOSE
  54. HEPARIN [Concomitant]
     Active Substance: HEPARIN SODIUM
  55. MAGNESIUM CHLORIDE [Concomitant]
     Active Substance: MAGNESIUM CHLORIDE
  56. GELFOAM [Concomitant]
     Active Substance: GELATIN\THROMBIN HUMAN
  57. DEXTROSE [Concomitant]
     Active Substance: DEXTROSE
  58. IMODIUM [Concomitant]
     Active Substance: LOPERAMIDE HYDROCHLORIDE
  59. FERROUS SULFATE [Concomitant]
     Active Substance: FERROUS SULFATE
  60. EPINEPHRINE [Concomitant]
     Active Substance: EPINEPHRINE
  61. LIDOCAINE [Concomitant]
     Active Substance: LIDOCAINE
  62. ONDANSETRON [Concomitant]
     Active Substance: ONDANSETRON
  63. PAROXETINE [Concomitant]
     Active Substance: PAROXETINE
     Indication: Euphoric mood
  64. ACETYL CYSTEINE [Concomitant]
  65. DICLOFENAC [Concomitant]
     Active Substance: DICLOFENAC
  66. TRIAMCINOLONE [Concomitant]
     Active Substance: TRIAMCINOLONE
  67. PREGABALIN [Concomitant]
     Active Substance: PREGABALIN
  68. NEURONTIN [Concomitant]
     Active Substance: GABAPENTIN
     Indication: Neuralgia
     Dates: start: 20160919
  69. LASIX [Concomitant]
     Active Substance: FUROSEMIDE
     Indication: Neuralgia
     Dates: start: 20160919
  70. VIRT CAPS [Concomitant]
     Indication: Neuralgia
     Dates: start: 20160919

REACTIONS (7)
  - Acute kidney injury [Not Recovered/Not Resolved]
  - Chronic kidney disease [Not Recovered/Not Resolved]
  - Renal tubular acidosis [Unknown]
  - Renal failure [Unknown]
  - Nephrogenic anaemia [Unknown]
  - Hyperparathyroidism secondary [Unknown]
  - End stage renal disease [Unknown]

NARRATIVE: CASE EVENT DATE: 20110701
